FAERS Safety Report 11849012 (Version 2)
Quarter: 2016Q1

REPORT INFORMATION
  Report Type: Spontaneous
  Country: US (occurrence: US)
  Receive Date: 20151218
  Receipt Date: 20160105
  Transmission Date: 20160526
  Serious: Yes (Hospitalization)
  Sender: FDA-Public Use
  Company Number: US-AUROBINDO-AUR-APL-2015-11360

PATIENT
  Age: 58 Year
  Sex: Female

DRUGS (2)
  1. BENZOCAINE. [Suspect]
     Active Substance: BENZOCAINE
     Indication: TOOTHACHE
     Route: 061
  2. LIDOCAINE. [Suspect]
     Active Substance: LIDOCAINE
     Indication: TOOTHACHE
     Dosage: 50 MG, UNK
     Route: 042

REACTIONS (4)
  - Mental status changes [Recovering/Resolving]
  - Methaemoglobinaemia [Recovering/Resolving]
  - Cyanosis [Recovering/Resolving]
  - Respiratory failure [Recovering/Resolving]
